FAERS Safety Report 8101458-7 (Version None)
Quarter: 2012Q1

REPORT INFORMATION
  Report Type: 
  Country: None (occurrence: None)
  Receive Date: 20120129
  Receipt Date: 20111011
  Transmission Date: 20120608
  Serious: No
  Sender: FDA-Public Use
  Company Number: US-ABBOTT-11P-163-0863011-00

PATIENT
  Sex: Male
  Weight: 81.72 kg

DRUGS (2)
  1. SULFASALAZINE [Suspect]
     Indication: PRODUCT USED FOR UNKNOWN INDICATION
  2. HUMIRA [Suspect]
     Indication: PSORIASIS
     Dates: start: 20070101, end: 20080101

REACTIONS (3)
  - TRIGEMINAL NEURALGIA [None]
  - FIBROMYALGIA [None]
  - FATIGUE [None]
